FAERS Safety Report 12508305 (Version 2)
Quarter: 2016Q3

REPORT INFORMATION
  Report Type: Spontaneous
  Country: US (occurrence: US)
  Receive Date: 20160629
  Receipt Date: 20160722
  Transmission Date: 20161109
  Serious: Yes (Death, Other)
  Sender: FDA-Public Use
  Company Number: US-GLAXOSMITHKLINE-US2016091999

PATIENT
  Sex: Male
  Weight: 73.92 kg

DRUGS (12)
  1. DECADRON [Concomitant]
     Active Substance: DEXAMETHASONE
  2. ADVAIR DISKUS [Suspect]
     Active Substance: FLUTICASONE PROPIONATE\SALMETEROL XINAFOATE
     Indication: CHRONIC OBSTRUCTIVE PULMONARY DISEASE
     Dosage: 250/50 MCG, 1 PUFF(S), BID
     Route: 055
     Dates: start: 20120411
  3. ADVAIR DISKUS [Suspect]
     Active Substance: FLUTICASONE PROPIONATE\SALMETEROL XINAFOATE
     Dosage: 1 PUFF(S), BID
     Route: 055
  4. ATIVAN [Concomitant]
     Active Substance: LORAZEPAM
  5. DUONEB [Concomitant]
     Active Substance: ALBUTEROL SULFATE\IPRATROPIUM BROMIDE
  6. HALDOL [Concomitant]
     Active Substance: HALOPERIDOL
  7. VENTOLIN HFA [Suspect]
     Active Substance: ALBUTEROL SULFATE
     Indication: CHRONIC OBSTRUCTIVE PULMONARY DISEASE
     Dosage: 2 PUFF(S), PRN
     Route: 055
     Dates: start: 20120411
  8. COMPAZINE [Concomitant]
     Active Substance: PROCHLORPERAZINE MALEATE
  9. DIFLUCAN [Concomitant]
     Active Substance: FLUCONAZOLE
  10. CELEXA [Concomitant]
     Active Substance: CITALOPRAM HYDROBROMIDE
  11. MORPHINE [Concomitant]
     Active Substance: MORPHINE
  12. SENNA LEAF [Concomitant]
     Active Substance: SENNA LEAF

REACTIONS (1)
  - Lung neoplasm malignant [Fatal]
